FAERS Safety Report 7000428-X (Version None)
Quarter: 2010Q3

REPORT INFORMATION
  Report Type: 
  Country: None (occurrence: None)
  Receive Date: 20100920
  Receipt Date: 20090908
  Transmission Date: 20110219
  Serious: No
  Sender: FDA-Public Use
  Company Number: US-ASTRAZENECA-2009SE12020

PATIENT
  Age: 80 Year
  Sex: Female
  Weight: 108.9 kg

DRUGS (5)
  1. SEROQUEL [Suspect]
     Route: 048
     Dates: start: 20080101
  2. SINEMET [Concomitant]
  3. LEXAPRO [Concomitant]
  4. NAMENDA [Concomitant]
  5. CALCIUM [Concomitant]

REACTIONS (1)
  - MUSCULAR WEAKNESS [None]
